FAERS Safety Report 9098743 (Version 1)
Quarter: 2013Q1

REPORT INFORMATION
  Report Type: Spontaneous
  Country: BR (occurrence: BR)
  Receive Date: 20130213
  Receipt Date: 20130213
  Transmission Date: 20140127
  Serious: Yes (Other)
  Sender: FDA-Public Use
  Company Number: BR-PFIZER INC-2013050563

PATIENT
  Age: 68 Year
  Sex: Female

DRUGS (1)
  1. XALATAN [Suspect]
     Dosage: 3 UG, 1X/DAY (ONE DROP EACH EYE, ONCE A DAY)
     Route: 047
     Dates: start: 2011, end: 2012

REACTIONS (2)
  - Blindness [Unknown]
  - Retinal disorder [Unknown]
